FAERS Safety Report 9094355 (Version 1)
Quarter: 2013Q1

REPORT INFORMATION
  Report Type: Spontaneous
  Country: US (occurrence: US)
  Receive Date: 20130201
  Receipt Date: 20130201
  Transmission Date: 20140127
  Serious: Yes (Hospitalization)
  Sender: FDA-Public Use
  Company Number: US-ELI_LILLY_AND_COMPANY-US201301007811

PATIENT
  Sex: Female

DRUGS (8)
  1. FORTEO [Suspect]
     Indication: OSTEOPOROSIS
     Dosage: 20 UG, QD
     Dates: start: 20121202
  2. SPIRIVA [Concomitant]
  3. ADVAIR [Concomitant]
  4. ALBUTEROL [Concomitant]
  5. IPRATROPIUM [Concomitant]
  6. NEXIUM [Concomitant]
  7. FENOFIBRATE [Concomitant]
  8. AMLODIPINE BESYLATE [Concomitant]

REACTIONS (1)
  - Respiratory tract infection [Recovering/Resolving]
